FAERS Safety Report 9375918 (Version 2)
Quarter: 2013Q3

REPORT INFORMATION
  Report Type: Spontaneous
  Country: US (occurrence: US)
  Receive Date: 20130628
  Receipt Date: 20130820
  Transmission Date: 20140515
  Serious: No
  Sender: FDA-Public Use
  Company Number: US-009507513-1306USA012889

PATIENT
  Age: 24 Year
  Sex: Female

DRUGS (6)
  1. IMPLANON [Suspect]
     Indication: CONTRACEPTION
     Dosage: 1 ROD EVERY 3 YEARS
     Route: 059
     Dates: start: 20120105
  2. PROZAC [Concomitant]
  3. NEUROTIN (ACETYLCARNITINE HYDROCHLORIDE) [Concomitant]
  4. AMOXICILLIN [Concomitant]
  5. TOPAMAX [Concomitant]
  6. IBUPROFEN [Concomitant]

REACTIONS (6)
  - Menstruation irregular [Unknown]
  - Medical device discomfort [Unknown]
  - Abdominal pain [Unknown]
  - Device breakage [Unknown]
  - Device kink [Unknown]
  - Device dislocation [Unknown]
